FAERS Safety Report 11820847 (Version 6)
Quarter: 2016Q1

REPORT INFORMATION
  Report Type: Spontaneous
  Country: DE (occurrence: DE)
  Receive Date: 20151210
  Receipt Date: 20160330
  Transmission Date: 20160525
  Serious: Yes (Other)
  Sender: FDA-Public Use
  Company Number: DE-ASTELLAS-2015US045783

PATIENT
  Sex: Female

DRUGS (4)
  1. ATORVASTATIN [Interacting]
     Active Substance: ATORVASTATIN
     Indication: PROPHYLAXIS
     Dosage: 10 MG, ONCE DAILY (EVENING)
     Route: 048
     Dates: start: 201403, end: 20160223
  2. ASPIRIN. [Concomitant]
     Active Substance: ASPIRIN
     Indication: CORONARY ARTERY DISEASE
     Dosage: 100 UNK, ONCE DAILY (ONCE IN THE MORNING)
     Route: 048
     Dates: start: 201403
  3. VESIKUR [Suspect]
     Active Substance: SOLIFENACIN SUCCINATE
     Indication: URGE INCONTINENCE
     Dosage: 10 MG, ONCE DAILY (EVENING)
     Route: 048
     Dates: start: 20130718, end: 20160211
  4. ENAPRIL [Concomitant]
     Active Substance: ENALAPRIL
     Indication: HYPERTENSION
     Dosage: 20 MG, 1-0-1/2
     Route: 048
     Dates: start: 2013

REACTIONS (15)
  - Decreased activity [Unknown]
  - Bundle branch block left [Unknown]
  - Bladder pain [Unknown]
  - Disturbance in attention [Recovering/Resolving]
  - Drug effect incomplete [Unknown]
  - Dizziness [Recovered/Resolved]
  - Vision blurred [Recovering/Resolving]
  - Dysuria [Not Recovered/Not Resolved]
  - Dysphonia [Unknown]
  - Slow response to stimuli [Unknown]
  - Bradyphrenia [Recovering/Resolving]
  - Hypoacusis [Recovered/Resolved]
  - Drug interaction [Unknown]
  - Amnesia [Recovering/Resolving]
  - Cystitis [Unknown]

NARRATIVE: CASE EVENT DATE: 2013
